FAERS Safety Report 12941970 (Version 5)
Quarter: 2016Q4

REPORT INFORMATION
  Report Type: Report from Study
  Country: JP (occurrence: JP)
  Receive Date: 20161114
  Receipt Date: 20161203
  Transmission Date: 20170207
  Serious: Yes (Death, Other)
  Sender: FDA-Public Use
  Company Number: JP-ASTRAZENECA-2016SF07377

PATIENT
  Age: 69 Year
  Sex: Male
  Weight: 57 kg

DRUGS (7)
  1. TAGRISSO [Suspect]
     Active Substance: OSIMERTINIB
     Indication: NON-SMALL CELL LUNG CANCER
     Route: 048
     Dates: start: 20160906, end: 20161001
  2. LOXONIN [Concomitant]
     Active Substance: LOXOPROFEN SODIUM
     Dosage: 60.0MG AS REQUIRED
     Route: 048
     Dates: end: 20161004
  3. ZOLPIDEM TARTRATE OD [Concomitant]
     Active Substance: ZOLPIDEM TARTRATE
     Indication: INSOMNIA
     Dosage: 5.0MG UNKNOWN
     Route: 048
     Dates: end: 20161003
  4. CELESTANA [Concomitant]
     Indication: RASH
     Dosage: 2.0DF UNKNOWN
     Route: 048
     Dates: start: 20160906, end: 20161003
  5. OLMETEC OD [Concomitant]
     Indication: HYPERTENSION
     Dosage: 10.0MG UNKNOWN
     Route: 048
     Dates: end: 20161003
  6. TAGRISSO [Suspect]
     Active Substance: OSIMERTINIB
     Indication: NON-SMALL CELL LUNG CANCER
     Route: 048
     Dates: start: 20160824, end: 20160904
  7. DENOTAS [Concomitant]
     Active Substance: CALCIUM CARBONATE\CHOLECALCIFEROL\MAGNESIUM CARBONATE
     Indication: PROPHYLAXIS
     Dosage: 2.0DF UNKNOWN
     Route: 048
     Dates: end: 20160927

REACTIONS (3)
  - Pyrexia [Recovering/Resolving]
  - Urticaria [Recovered/Resolved]
  - Interstitial lung disease [Fatal]

NARRATIVE: CASE EVENT DATE: 20160902
